FAERS Safety Report 17629851 (Version 1)
Quarter: 2020Q2

REPORT INFORMATION
  Report Type: Spontaneous
  Country: US (occurrence: US)
  Receive Date: 20200406
  Receipt Date: 20200406
  Transmission Date: 20200713
  Serious: Yes (Other)
  Sender: FDA-Public Use
  Company Number: US-TEVA-2020-US-1219793

PATIENT
  Age: 25 Year
  Sex: Female

DRUGS (3)
  1. CYTARABINE. [Suspect]
     Active Substance: CYTARABINE
     Indication: ACUTE MYELOID LEUKAEMIA
     Dosage: 100 MG/M2 DAYS 1-7
     Route: 042
  2. IDARUBICIN [Suspect]
     Active Substance: IDARUBICIN
     Indication: ACUTE MYELOID LEUKAEMIA
     Dosage: 12 MG/M2 DAYS 1-3
     Route: 042
  3. OMACETAXINE [Suspect]
     Active Substance: OMACETAXINE
     Indication: ACUTE MYELOID LEUKAEMIA
     Dosage: 6 MG/M2 DAILY; 3 MG/M2 BID FOR 1-7 DAYS
     Route: 058

REACTIONS (1)
  - Hidradenitis [Recovered/Resolved]
